FAERS Safety Report 13022261 (Version 6)
Quarter: 2017Q2

REPORT INFORMATION
  Report Type: Spontaneous
  Country: US (occurrence: US)
  Receive Date: 20161213
  Receipt Date: 20170517
  Transmission Date: 20170830
  Serious: Yes (Hospitalization)
  Sender: FDA-Public Use
  Company Number: US-PFIZER INC-2016556239

PATIENT
  Age: 71 Year
  Sex: Female

DRUGS (8)
  1. PREMARIN [Suspect]
     Active Substance: ESTROGENS, CONJUGATED
     Indication: OSTEOPENIA
     Dosage: 1.25 MG, 1X/DAY
     Dates: start: 201511, end: 2016
  2. PREMARIN [Suspect]
     Active Substance: ESTROGENS, CONJUGATED
     Indication: MENOPAUSAL SYMPTOMS
     Dosage: 0.625 MG, UNK
     Route: 067
     Dates: start: 1987
  3. PREMARIN [Suspect]
     Active Substance: ESTROGENS, CONJUGATED
     Indication: OSTEOPENIA
     Dosage: 1.25 3RD DAY STARTED ALTERNATING AND 2-3 X WEEK 0.5 APPLICABLE
     Route: 067
     Dates: start: 1998
  4. PREMARIN [Suspect]
     Active Substance: ESTROGENS, CONJUGATED
     Indication: CARDIAC DISORDER
     Dosage: 0.625 MG ^2 +X PER WEEK^
     Route: 067
     Dates: start: 201512, end: 201608
  5. PREMARIN [Suspect]
     Active Substance: ESTROGENS, CONJUGATED
     Indication: OSTEOPOROSIS
     Dosage: 0.625 MG AND 1.25 MG
     Route: 067
     Dates: start: 1988
  6. PREMARIN [Suspect]
     Active Substance: ESTROGENS, CONJUGATED
     Indication: FLUSHING
  7. PREMARIN [Suspect]
     Active Substance: ESTROGENS, CONJUGATED
     Indication: HORMONE REPLACEMENT THERAPY
     Dosage: 0.625 MG, 2 DAYS THEN ALTERNATE
     Dates: start: 199008
  8. PREMARIN [Suspect]
     Active Substance: ESTROGENS, CONJUGATED
     Indication: HOT FLUSH

REACTIONS (3)
  - Suspected counterfeit product [Not Recovered/Not Resolved]
  - Drug ineffective [Recovered/Resolved]
  - Vulvovaginal mycotic infection [Not Recovered/Not Resolved]

NARRATIVE: CASE EVENT DATE: 201512
